FAERS Safety Report 20823874 (Version 5)
Quarter: 2022Q3

REPORT INFORMATION
  Report Type: Report from Study
  Country: DE (occurrence: None)
  Receive Date: 20220513
  Receipt Date: 20220916
  Transmission Date: 20221027
  Serious: Yes (Other)
  Sender: FDA-Public Use
  Company Number: DE-ROCHE-3090838

PATIENT
  Age: 44 Year
  Sex: Female
  Weight: 63 kg

DRUGS (36)
  1. ATEZOLIZUMAB [Suspect]
     Active Substance: ATEZOLIZUMAB
     Indication: Triple negative breast cancer
     Dosage: ON DAYS 1 AND 15
     Route: 041
     Dates: start: 20220329
  2. ATEZOLIZUMAB [Suspect]
     Active Substance: ATEZOLIZUMAB
     Dosage: ON DAYS 1 AND 15
     Route: 041
     Dates: start: 20220414
  3. ATEZOLIZUMAB [Suspect]
     Active Substance: ATEZOLIZUMAB
     Dosage: ON DAYS 1 AND 15
     Route: 041
     Dates: start: 20220428
  4. ATEZOLIZUMAB [Suspect]
     Active Substance: ATEZOLIZUMAB
     Dosage: ON DAYS 1 AND 15
     Route: 041
     Dates: start: 20220530
  5. ATEZOLIZUMAB [Suspect]
     Active Substance: ATEZOLIZUMAB
     Dosage: ON DAYS 1 AND 15
     Route: 041
     Dates: start: 20220613
  6. ATEZOLIZUMAB [Suspect]
     Active Substance: ATEZOLIZUMAB
     Dosage: ON DAYS 1 AND 15
     Route: 041
     Dates: start: 20220627
  7. ATEZOLIZUMAB [Suspect]
     Active Substance: ATEZOLIZUMAB
     Dosage: ON DAYS 1 AND 15
     Route: 041
     Dates: start: 20220711
  8. ATEZOLIZUMAB [Suspect]
     Active Substance: ATEZOLIZUMAB
     Dosage: ON DAYS 1 AND 15
     Route: 041
     Dates: start: 20220725
  9. ATEZOLIZUMAB [Suspect]
     Active Substance: ATEZOLIZUMAB
     Dosage: ON DAYS 1 AND 15
     Route: 041
     Dates: start: 20220809
  10. BEVACIZUMAB [Suspect]
     Active Substance: BEVACIZUMAB
     Indication: Triple negative breast cancer
     Dosage: ON DAYS 1 AND 15
     Route: 042
     Dates: start: 20220329
  11. BEVACIZUMAB [Suspect]
     Active Substance: BEVACIZUMAB
     Dosage: ON DAYS 1 AND 15
     Route: 042
     Dates: start: 20220414
  12. BEVACIZUMAB [Suspect]
     Active Substance: BEVACIZUMAB
     Dosage: ON DAYS 1 AND 15
     Route: 042
     Dates: start: 20220428
  13. BEVACIZUMAB [Suspect]
     Active Substance: BEVACIZUMAB
     Dosage: ON DAYS 1 AND 15
     Route: 042
     Dates: start: 20220530
  14. BEVACIZUMAB [Suspect]
     Active Substance: BEVACIZUMAB
     Dosage: ON DAYS 1 AND 15
     Route: 042
     Dates: start: 20220613
  15. BEVACIZUMAB [Suspect]
     Active Substance: BEVACIZUMAB
     Dosage: ON DAYS 1 AND 15
     Route: 042
     Dates: start: 20220627
  16. BEVACIZUMAB [Suspect]
     Active Substance: BEVACIZUMAB
     Dosage: ON DAYS 1 AND 15
     Route: 042
     Dates: start: 20220711
  17. BEVACIZUMAB [Suspect]
     Active Substance: BEVACIZUMAB
     Dosage: ON DAYS 1 AND 15
     Route: 042
     Dates: start: 20220725
  18. BEVACIZUMAB [Suspect]
     Active Substance: BEVACIZUMAB
     Dosage: ON DAYS 1 AND 15
     Route: 042
     Dates: start: 20220810
  19. PACLITAXEL [Suspect]
     Active Substance: PACLITAXEL
     Indication: Triple negative breast cancer
     Dosage: ON DAYS 1, 8 AND 15
     Route: 042
     Dates: start: 20220329, end: 20220428
  20. PACLITAXEL [Suspect]
     Active Substance: PACLITAXEL
     Dosage: ON DAYS 1, 8 AND 15
     Route: 042
     Dates: start: 20220407
  21. PACLITAXEL [Suspect]
     Active Substance: PACLITAXEL
     Dosage: ON DAYS 1, 8 AND 15
     Route: 042
     Dates: start: 20220414
  22. PACLITAXEL [Suspect]
     Active Substance: PACLITAXEL
     Dosage: ON DAYS 1, 8 AND 15
     Route: 042
     Dates: start: 20220428
  23. PACLITAXEL [Suspect]
     Active Substance: PACLITAXEL
     Dosage: ON DAYS 1, 8 AND 15
     Route: 042
     Dates: start: 20220530
  24. PACLITAXEL [Suspect]
     Active Substance: PACLITAXEL
     Dosage: ON DAYS 1, 8 AND 15
     Route: 042
     Dates: start: 20220613
  25. PACLITAXEL [Suspect]
     Active Substance: PACLITAXEL
     Dosage: ON DAYS 1, 8 AND 15
     Route: 042
     Dates: start: 20220627
  26. PACLITAXEL [Suspect]
     Active Substance: PACLITAXEL
     Dosage: ON DAYS 1, 8 AND 15
     Route: 042
     Dates: start: 20220704
  27. PACLITAXEL [Suspect]
     Active Substance: PACLITAXEL
     Dosage: ON DAYS 1, 8 AND 15
     Route: 042
     Dates: start: 20220711
  28. PACLITAXEL [Suspect]
     Active Substance: PACLITAXEL
     Dosage: ON DAYS 1, 8 AND 15
     Route: 042
     Dates: start: 20220725
  29. PACLITAXEL [Suspect]
     Active Substance: PACLITAXEL
     Dosage: ON DAYS 1, 8 AND 15
     Route: 042
     Dates: start: 20220810
  30. PANTOPRAZOLE [Concomitant]
     Active Substance: PANTOPRAZOLE
     Indication: Prophylaxis
     Route: 048
     Dates: start: 20220119
  31. VITAMIN B6 [Concomitant]
     Active Substance: PYRIDOXINE HYDROCHLORIDE
     Indication: Prophylaxis
     Route: 048
     Dates: start: 20220322
  32. AMPHOTERICIN B [Concomitant]
     Active Substance: AMPHOTERICIN B
     Route: 048
     Dates: start: 20220322
  33. CANNABIDIOL [Concomitant]
     Active Substance: CANNABIDIOL
     Indication: Prophylaxis
     Dosage: 9 DROPS
     Route: 048
     Dates: start: 20220320
  34. CARBIMAZOLE [Concomitant]
     Active Substance: CARBIMAZOLE
     Indication: Hyperthyroidism
     Route: 048
     Dates: start: 20220502, end: 20220519
  35. LEVOTHYROXINE SODIUM [Concomitant]
     Active Substance: LEVOTHYROXINE SODIUM
     Indication: Hyperthyroidism
     Route: 048
     Dates: start: 20220531, end: 20220619
  36. LEVOTHYROXINE SODIUM [Concomitant]
     Active Substance: LEVOTHYROXINE SODIUM
     Route: 048
     Dates: start: 20220620

REACTIONS (1)
  - Autoimmune thyroiditis [Recovered/Resolved with Sequelae]

NARRATIVE: CASE EVENT DATE: 20220428
